FAERS Safety Report 25433306 (Version 2)
Quarter: 2025Q2

REPORT INFORMATION
  Report Type: Spontaneous
  Country: US (occurrence: US)
  Receive Date: 20250613
  Receipt Date: 20250629
  Transmission Date: 20250716
  Serious: Yes (Other)
  Sender: BAUSCH AND LOMB
  Company Number: US-BAUSCHBL-2025BNL009926

PATIENT
  Weight: 79.37 kg

DRUGS (1)
  1. XIIDRA [Suspect]
     Active Substance: LIFITEGRAST
     Indication: Product used for unknown indication
     Route: 065

REACTIONS (5)
  - Loss of personal independence in daily activities [Recovered/Resolved]
  - Dry eye [Recovered/Resolved]
  - Eye disorder [Recovered/Resolved]
  - Visual impairment [Recovered/Resolved]
  - Drug ineffective [Unknown]
